FAERS Safety Report 8135038-4 (Version None)
Quarter: 2012Q1

REPORT INFORMATION
  Report Type: 
  Country: None (occurrence: None)
  Receive Date: 20120103
  Receipt Date: 20111112
  Transmission Date: 20120608
  Serious: No
  Sender: FDA-Public Use
  Company Number: AE-2011-003430

PATIENT
  Age: 58 Year
  Sex: Female
  Weight: 51.7101 kg

DRUGS (5)
  1. MORPHINE [Concomitant]
  2. INCIVEK [Suspect]
     Dosage: 2250 MG (750 MG, 3 IN 1 D), ORAL
     Route: 048
     Dates: start: 20111107, end: 20111114
  3. RIBAVIRIN [Concomitant]
  4. DILAUDID [Concomitant]
  5. PEG-INTRON [Concomitant]

REACTIONS (5)
  - CONFUSIONAL STATE [None]
  - HYPERSOMNIA [None]
  - ASTHENIA [None]
  - PAIN [None]
  - FEELING COLD [None]
